FAERS Safety Report 16901110 (Version 3)
Quarter: 2019Q4

REPORT INFORMATION
  Report Type: Spontaneous
  Country: US (occurrence: US)
  Receive Date: 20191009
  Receipt Date: 20191126
  Transmission Date: 20200122
  Serious: Yes (Other)
  Sender: FDA-Public Use
  Company Number: US-PFIZER INC-2019430666

PATIENT
  Age: 58 Year
  Sex: Female

DRUGS (2)
  1. NICOTROL [Suspect]
     Active Substance: NICOTINE
     Indication: SMOKING CESSATION THERAPY
     Dosage: INHALE 1 PUFF BY MOUTH AS NEEDED
     Route: 055
     Dates: start: 1999
  2. NICOTROL [Suspect]
     Active Substance: NICOTINE
     Dosage: INHALE 1 PUFF BY MOUTH AS NEEDED
     Route: 055
     Dates: start: 20191118

REACTIONS (3)
  - Head injury [Unknown]
  - Concussion [Unknown]
  - Disturbance in attention [Unknown]
